FAERS Safety Report 7091682-7 (Version None)
Quarter: 2010Q4

REPORT INFORMATION
  Report Type: 
  Country: None (occurrence: None)
  Receive Date: 20101109
  Receipt Date: 20081124
  Transmission Date: 20110411
  Serious: No
  Sender: FDA-Public Use
  Company Number: US-KINGPHARMUSA00001-K200801351

PATIENT
  Sex: Female
  Weight: 77.098 kg

DRUGS (3)
  1. EPIPEN [Suspect]
     Indication: HYPERSENSITIVITY
     Dosage: 0.3 MG, SINGLE
     Dates: start: 20081123, end: 20081123
  2. ATARAX [Concomitant]
     Indication: HYPERSENSITIVITY
     Dosage: UNK
  3. SINGULAIR [Concomitant]
     Indication: HYPERSENSITIVITY
     Dosage: UNK

REACTIONS (1)
  - DRUG INEFFECTIVE [None]
